FAERS Safety Report 23217131 (Version 1)
Quarter: 2023Q4

REPORT INFORMATION
  Report Type: Spontaneous
  Country: GB (occurrence: GB)
  Receive Date: 20231122
  Receipt Date: 20231122
  Transmission Date: 20240110
  Serious: Yes (Other)
  Sender: FDA-Public Use
  Company Number: None

PATIENT
  Age: 53 Year
  Weight: 180 kg

DRUGS (2)
  1. EMGALITY [Suspect]
     Active Substance: GALCANEZUMAB-GNLM
     Indication: Vestibular migraine
     Dosage: SINGLE LOADING DOSE
     Route: 065
     Dates: start: 20230920, end: 20230920
  2. TOPIRAMATE [Concomitant]
     Active Substance: TOPIRAMATE
     Indication: Vestibular migraine
     Dosage: UNK
     Dates: start: 20230705, end: 20230810

REACTIONS (8)
  - Arthralgia [Not Recovered/Not Resolved]
  - Back pain [Unknown]
  - Alopecia [Unknown]
  - Abdominal distension [Unknown]
  - Headache [Unknown]
  - Sleep disorder [Unknown]
  - Weight increased [Unknown]
  - Constipation [Unknown]

NARRATIVE: CASE EVENT DATE: 20230921
